FAERS Safety Report 6014566-1 (Version None)
Quarter: 2008Q4

REPORT INFORMATION
  Report Type: 
  Country: None (occurrence: None)
  Receive Date: 20081219
  Receipt Date: 20080821
  Transmission Date: 20090506
  Serious: No
  Sender: FDA-Public Use
  Company Number: A0743739A

PATIENT
  Age: 71 Year
  Sex: Male

DRUGS (8)
  1. AVODART [Suspect]
     Indication: BENIGN PROSTATIC HYPERPLASIA
     Dosage: .5MG PER DAY
     Route: 048
     Dates: start: 20050101
  2. LIPITOR [Concomitant]
  3. DETROL [Concomitant]
  4. DOXAZOSIN MESYLATE [Concomitant]
  5. CARBIDOPA AND LEVODOPA [Concomitant]
  6. LEVOTHYROXINE SODIUM [Concomitant]
  7. VITAMINS [Concomitant]
  8. LOVAZA [Concomitant]

REACTIONS (2)
  - DRUG INEFFECTIVE [None]
  - EJACULATION FAILURE [None]
